FAERS Safety Report 9401437 (Version 2)
Quarter: 2015Q4

REPORT INFORMATION
  Report Type: Report from Study
  Country: US (occurrence: US)
  Receive Date: 20130716
  Receipt Date: 20151022
  Transmission Date: 20160305
  Serious: Yes (Death, Other)
  Sender: FDA-Public Use
  Company Number: US-ROCHE-1123963

PATIENT
  Age: 68 Year
  Sex: Male
  Weight: 83.99 kg

DRUGS (3)
  1. DOXYCYCLINE. [Concomitant]
     Active Substance: DOXYCYCLINE
     Indication: INFECTION
     Route: 048
     Dates: start: 201207
  2. ZELBORAF [Suspect]
     Active Substance: VEMURAFENIB
     Indication: SKIN CANCER
     Route: 042
     Dates: start: 20120717
  3. ZELBORAF [Suspect]
     Active Substance: VEMURAFENIB
     Indication: METASTATIC MALIGNANT MELANOMA
     Dosage: 4 PILLS
     Route: 048
     Dates: start: 20120717

REACTIONS (19)
  - Acne [Not Recovered/Not Resolved]
  - Peripheral swelling [Unknown]
  - Squamous cell carcinoma of skin [Unknown]
  - Rash [Recovering/Resolving]
  - Rash erythematous [Unknown]
  - Oedema [Unknown]
  - Alopecia [Not Recovered/Not Resolved]
  - Pruritus [Not Recovered/Not Resolved]
  - Flatulence [Unknown]
  - Blood blister [Not Recovered/Not Resolved]
  - Pain [Unknown]
  - Blister [Not Recovered/Not Resolved]
  - Arthralgia [Not Recovered/Not Resolved]
  - Genital rash [Recovering/Resolving]
  - Hypoaesthesia [Recovered/Resolved]
  - Chills [Unknown]
  - Disease progression [Fatal]
  - Melanocytic naevus [Not Recovered/Not Resolved]
  - Hypoaesthesia oral [Recovered/Resolved]

NARRATIVE: CASE EVENT DATE: 201208
